FAERS Safety Report 7466147-0 (Version None)
Quarter: 2011Q2

REPORT INFORMATION
  Report Type: 
  Country: None (occurrence: None)
  Receive Date: 20110509
  Receipt Date: 20110428
  Transmission Date: 20111010
  Serious: Yes (Other)
  Sender: FDA-Public Use
  Company Number: US-ASTRAZENECA-2011SE24781

PATIENT
  Age: 70 Year
  Sex: Female
  Weight: 86.2 kg

DRUGS (7)
  1. CRESTOR [Suspect]
     Indication: BLOOD CHOLESTEROL INCREASED
     Route: 048
  2. CITALOPRAM HYDROBROMIDE [Concomitant]
  3. CYMBALTA [Concomitant]
  4. LEVOTHYROXINE SODIUM [Concomitant]
  5. HYZAAR [Concomitant]
     Dosage: 100-12.5 DAILY
  6. ATENOLOL [Suspect]
     Route: 048
  7. ASPIRIN [Concomitant]

REACTIONS (3)
  - ANXIETY [None]
  - TRANSIENT ISCHAEMIC ATTACK [None]
  - STRESS [None]
